FAERS Safety Report 7244421-0 (Version None)
Quarter: 2011Q1

REPORT INFORMATION
  Report Type: 
  Country: None (occurrence: None)
  Receive Date: 20110125
  Receipt Date: 20110118
  Transmission Date: 20110831
  Serious: Yes (Other)
  Sender: FDA-Public Use
  Company Number: US-US-EMD SERONO, INC.-232518J10USA

PATIENT
  Sex: Female

DRUGS (3)
  1. REBIF [Suspect]
     Indication: PRODUCT USED FOR UNKNOWN INDICATION
     Route: 058
     Dates: start: 20090401
  2. UNSPECIFIED MEDICATIONS [Concomitant]
  3. ANTIDEPRESSANT [Concomitant]
     Indication: DEPRESSION
     Dates: start: 20080101

REACTIONS (4)
  - INFLUENZA LIKE ILLNESS [None]
  - PNEUMONIA [None]
  - DEPRESSION [None]
  - SPEECH DISORDER [None]
